FAERS Safety Report 20802984 (Version 3)
Quarter: 2022Q2

REPORT INFORMATION
  Report Type: Report from Study
  Country: DO (occurrence: DO)
  Receive Date: 20220509
  Receipt Date: 20220524
  Transmission Date: 20220720
  Serious: Yes (Hospitalization, Other)
  Sender: FDA-Public Use
  Company Number: DO-JNJFOC-20220458756

PATIENT
  Sex: Male

DRUGS (2)
  1. BORTEZOMIB [Suspect]
     Active Substance: BORTEZOMIB
     Indication: Plasma cell myeloma refractory
     Dosage: UNK
     Route: 065
  2. DARZALEX [Suspect]
     Active Substance: DARATUMUMAB
     Indication: Plasma cell myeloma refractory
     Dosage: 16 MILLIGRAM/KILOGRAM, 1/WEEK
     Route: 042
     Dates: start: 20220302, end: 20220428

REACTIONS (6)
  - Hypotension [Unknown]
  - Tumour haemorrhage [Unknown]
  - Pharyngeal neoplasm [Unknown]
  - Drug ineffective [Unknown]
  - Oral neoplasm [Unknown]
  - Mouth haemorrhage [Unknown]

NARRATIVE: CASE EVENT DATE: 20220101
